FAERS Safety Report 4582451-8 (Version None)
Quarter: 2005Q1

REPORT INFORMATION
  Report Type: 
  Country: None (occurrence: None)
  Receive Date: 20050125
  Receipt Date: 20040827
  Transmission Date: 20050727
  Serious: No
  Sender: FDA-Public Use
  Company Number: REM_00074_2004

PATIENT
  Age: 61 Year
  Sex: Female
  Weight: 80 kg

DRUGS (8)
  1. REMODULIN [Suspect]
     Indication: PULMONARY HYPERTENSION
     Dosage: 17.5 NG/KG/MIN CONTINOUS SC
     Route: 058
     Dates: start: 20040715
  2. LEVAQUIN [Suspect]
     Dosage: 500 MG QD
  3. LASIX [Concomitant]
  4. ALDACTONE [Concomitant]
  5. ALTACE [Concomitant]
  6. ALLOPURINOL [Concomitant]
  7. PLAVIX [Concomitant]
  8. PRANDIN ^KUHN^ [Concomitant]

REACTIONS (1)
  - BLOOD BILIRUBIN INCREASED [None]
